FAERS Safety Report 8308373-4 (Version None)
Quarter: 2012Q2

REPORT INFORMATION
  Report Type: 
  Country: None (occurrence: None)
  Receive Date: 20120424
  Receipt Date: 20120411
  Transmission Date: 20120825
  Serious: Yes (Hospitalization)
  Sender: FDA-Public Use
  Company Number: CA-ROCHE-1059150

PATIENT
  Age: 13 Year
  Sex: Male
  Weight: 33 kg

DRUGS (1)
  1. SOMATROPIN [Suspect]
     Indication: PRODUCT USED FOR UNKNOWN INDICATION
     Route: 058

REACTIONS (3)
  - DEXTROCARDIA [None]
  - BUNDLE BRANCH BLOCK RIGHT [None]
  - PULMONARY VALVE REPLACEMENT [None]
